FAERS Safety Report 8254632-3 (Version None)
Quarter: 2012Q1

REPORT INFORMATION
  Report Type: 
  Country: None (occurrence: None)
  Receive Date: 20120329
  Receipt Date: 20120322
  Transmission Date: 20120608
  Serious: Yes (Other)
  Sender: FDA-Public Use
  Company Number: 2011MA004150

PATIENT
  Sex: Male
  Weight: 77.1115 kg

DRUGS (16)
  1. MEGESTROL ACETATE [Concomitant]
  2. PLAVIX [Concomitant]
  3. VITAMIN B-12 [Concomitant]
  4. LIPITOR [Concomitant]
  5. LISINOPRIL [Concomitant]
  6. CLONAZEPAM [Concomitant]
  7. HYDROCODONE BITARTRATE AND ACETAMINOPHEN [Concomitant]
  8. KEPPRA [Concomitant]
  9. AMLODIPINE [Concomitant]
  10. ASPIRIN [Concomitant]
  11. METOPROLOL SUCCINATE [Concomitant]
  12. MICARDIS [Concomitant]
  13. TROHEXYPHENIDYL [Concomitant]
  14. METOCLOPRAMIDE [Suspect]
     Indication: GASTROOESOPHAGEAL REFLUX DISEASE
     Dosage: 10 MG; QID
     Dates: start: 20080102, end: 20100201
  15. PEPCID [Concomitant]
  16. VYTORIN [Concomitant]

REACTIONS (18)
  - GAIT DISTURBANCE [None]
  - HAEMORRHOIDS [None]
  - CEREBRAL ATROPHY [None]
  - ABNORMAL LOSS OF WEIGHT [None]
  - COLONIC POLYP [None]
  - EMOTIONAL DISORDER [None]
  - BALANCE DISORDER [None]
  - PARKINSONISM [None]
  - CEREBRAL SMALL VESSEL ISCHAEMIC DISEASE [None]
  - MYOCLONUS [None]
  - TARDIVE DYSKINESIA [None]
  - INJURY [None]
  - DIZZINESS [None]
  - DENTAL DISCOMFORT [None]
  - ECONOMIC PROBLEM [None]
  - DYSPHAGIA [None]
  - MEMORY IMPAIRMENT [None]
  - ADENOMA BENIGN [None]
